FAERS Safety Report 5002248-4 (Version None)
Quarter: 2006Q2

REPORT INFORMATION
  Report Type: 
  Country: None (occurrence: None)
  Receive Date: 20060505
  Receipt Date: 20060420
  Transmission Date: 20061013
  Serious: Yes (Other)
  Sender: FDA-Public Use
  Company Number: 2006BH008460

PATIENT

DRUGS (1)
  1. GAMMAGARD S/D [Suspect]
     Dosage: IV
     Route: 042

REACTIONS (1)
  - MYOCARDIAL INFARCTION [None]
